FAERS Safety Report 25033806 (Version 2)
Quarter: 2025Q2

REPORT INFORMATION
  Report Type: Spontaneous
  Country: IL (occurrence: IL)
  Receive Date: 20250303
  Receipt Date: 20250407
  Transmission Date: 20250716
  Serious: Yes (Death, Hospitalization, Other)
  Sender: MERCK SHARP AND DOHME
  Company Number: IL-009507513-2259231

PATIENT
  Sex: Female

DRUGS (1)
  1. KEYTRUDA [Suspect]
     Active Substance: PEMBROLIZUMAB
     Indication: Triple negative breast cancer

REACTIONS (15)
  - Lung opacity [Fatal]
  - Pneumonia [Fatal]
  - Septic embolus [Fatal]
  - Renal cortical necrosis [Unknown]
  - Adrenal insufficiency [Unknown]
  - Medullary thyroid cancer [Unknown]
  - Hypotension [Unknown]
  - Emotional distress [Unknown]
  - Oxygen saturation decreased [Unknown]
  - Pain [Unknown]
  - Leukopenia [Unknown]
  - Neutropenia [Unknown]
  - Haemoglobin abnormal [Unknown]
  - Hydronephrosis [Unknown]
  - Lymphadenopathy [Unknown]

NARRATIVE: CASE EVENT DATE: 20240501
